FAERS Safety Report 4285450-9 (Version None)
Quarter: 2004Q1

REPORT INFORMATION
  Report Type: 
  Country: None (occurrence: None)
  Receive Date: 20040202
  Receipt Date: 20040202
  Transmission Date: 20041129
  Serious: Yes (Life-Threatening, Hospitalization)
  Sender: FDA-Public Use
  Company Number: None

PATIENT

DRUGS (14)
  1. HEPARIN [Suspect]
     Indication: PROPHYLAXIS
     Dosage: 1000 UNITS/HR IV
     Route: 042
     Dates: start: 20030828, end: 20030831
  2. HEPARIN [Suspect]
     Indication: PULMONARY EMBOLISM
     Dosage: 1000 UNITS/HR IV
     Route: 042
     Dates: start: 20030828, end: 20030831
  3. IPRATROPIUM BROMIDE [Concomitant]
  4. ALBUTEROL [Concomitant]
  5. MORPHINE [Concomitant]
  6. LORAZEPAM [Concomitant]
  7. SUCRALFATE [Concomitant]
  8. PIPERACILLIN [Concomitant]
  9. TAMOBACTAM [Concomitant]
  10. PHENYTOIN [Concomitant]
  11. FLUCONAZOLE [Concomitant]
  12. MAGNESIUM SULFATE [Concomitant]
  13. METOPURIZOLE (?) PARTIALLY ILLEGIBLE SEE IMAGE [Concomitant]
  14. AMIODARONE HCL [Concomitant]

REACTIONS (12)
  - ACTIVATED PARTIAL THROMBOPLASTIN TIME PROLONGED [None]
  - ACUTE RESPIRATORY DISTRESS SYNDROME [None]
  - ATRIAL FIBRILLATION [None]
  - HYPERKALAEMIA [None]
  - HYPOTENSION [None]
  - MELAENA [None]
  - MULTI-ORGAN FAILURE [None]
  - PANCREATITIS [None]
  - PLATELET COUNT DECREASED [None]
  - RENAL FAILURE ACUTE [None]
  - SEPTIC SHOCK [None]
  - TACHYCARDIA [None]
